FAERS Safety Report 21864658 (Version 1)
Quarter: 2023Q1

REPORT INFORMATION
  Report Type: Spontaneous
  Country: US (occurrence: US)
  Receive Date: 20230116
  Receipt Date: 20230116
  Transmission Date: 20230418
  Serious: No
  Sender: FDA-Public Use
  Company Number: US-TEVA-2022-US-2842446

PATIENT
  Age: 63 Year
  Sex: Male
  Weight: 124.58 kg

DRUGS (4)
  1. WARFARIN [Suspect]
     Active Substance: WARFARIN
     Indication: Product used for unknown indication
     Route: 065
  2. WARFARIN [Suspect]
     Active Substance: WARFARIN
     Dosage: 3 MG FOR FOUR DAYS, 6MG FOR THREE DAYS, REPEAT
     Route: 065
  3. CABOZANTINIB [Suspect]
     Active Substance: CABOZANTINIB
     Indication: Renal cancer
     Dosage: 40 MILLIGRAM DAILY;
     Route: 048
     Dates: start: 20220216
  4. CABOZANTINIB [Suspect]
     Active Substance: CABOZANTINIB
     Dosage: 20 MILLIGRAM DAILY;
     Route: 048
     Dates: start: 202206

REACTIONS (8)
  - Pruritus [Unknown]
  - Fatigue [Unknown]
  - Diarrhoea [Unknown]
  - Dizziness [Unknown]
  - Blood pressure systolic increased [Unknown]
  - Dyspnoea exertional [Unknown]
  - Dry skin [Unknown]
  - Blood viscosity decreased [Unknown]

NARRATIVE: CASE EVENT DATE: 20220101
